FAERS Safety Report 6451479-5 (Version None)
Quarter: 2009Q4

REPORT INFORMATION
  Report Type: 
  Country: None (occurrence: None)
  Receive Date: 20091123
  Receipt Date: 20090424
  Transmission Date: 20100525
  Serious: No
  Sender: FDA-Public Use
  Company Number: US-BRISTOL-MYERS SQUIBB COMPANY-14600274

PATIENT
  Age: 66 Year
  Sex: Male
  Weight: 73 kg

DRUGS (6)
  1. AVALIDE [Suspect]
     Dosage: 1 DF= 300/12.5MG
  2. AVAPRO [Suspect]
     Indication: HYPERTENSION
  3. OMEPRAZOLE [Concomitant]
  4. ATENOLOL [Concomitant]
  5. LOVASTATIN [Concomitant]
  6. BABY ASPIRIN [Concomitant]

REACTIONS (2)
  - PRURITUS [None]
  - SCAB [None]
